FAERS Safety Report 6273697-1 (Version None)
Quarter: 2009Q3

REPORT INFORMATION
  Report Type: 
  Country: None (occurrence: None)
  Receive Date: 20090720
  Receipt Date: 20090717
  Transmission Date: 20100115
  Serious: Yes (Hospitalization)
  Sender: FDA-Public Use
  Company Number: A0797055A

PATIENT
  Sex: Female
  Weight: 75 kg

DRUGS (2)
  1. ALLI [Suspect]
     Route: 048
     Dates: start: 20070101
  2. NONE [Concomitant]

REACTIONS (13)
  - BALANCE DISORDER [None]
  - CONFUSIONAL STATE [None]
  - FEELING ABNORMAL [None]
  - HYPOAESTHESIA [None]
  - HYPOGLYCAEMIA [None]
  - MALAISE [None]
  - MENTAL IMPAIRMENT [None]
  - PRESYNCOPE [None]
  - RECTAL DISCHARGE [None]
  - THIRST [None]
  - TREMOR [None]
  - VERTIGO [None]
  - WEIGHT DECREASED [None]
